FAERS Safety Report 8132913-1 (Version None)
Quarter: 2012Q1

REPORT INFORMATION
  Report Type: 
  Country: None (occurrence: None)
  Receive Date: 20120213
  Receipt Date: 20120206
  Transmission Date: 20120608
  Serious: Yes (Other)
  Sender: FDA-Public Use
  Company Number: FR-JNJFOC-20111208971

PATIENT
  Age: 80 Year
  Sex: Male

DRUGS (1)
  1. NIZORAL [Suspect]
     Indication: PROSTATE CANCER
     Route: 048
     Dates: start: 20101201, end: 20111220

REACTIONS (2)
  - ELECTROCARDIOGRAM QT PROLONGED [None]
  - VENTRICULAR ARRHYTHMIA [None]
